FAERS Safety Report 11741388 (Version 1)
Quarter: 2015Q4

REPORT INFORMATION
  Report Type: Report from Study
  Country: US (occurrence: US)
  Receive Date: 20151116
  Receipt Date: 20151116
  Transmission Date: 20160304
  Serious: No
  Sender: FDA-Public Use
  Company Number: US-AMGEN-USASL2015120188

PATIENT
  Age: 50 Year
  Sex: Female

DRUGS (3)
  1. ENBREL [Suspect]
     Active Substance: ETANERCEPT
     Indication: RHEUMATOID ARTHRITIS
     Dosage: 50 MG, WEEK
     Route: 065
  2. AMINO ACIDS [Concomitant]
     Active Substance: AMINO ACIDS
     Indication: HERPES VIRUS INFECTION
     Dosage: UNK
  3. LYSINE [Concomitant]
     Active Substance: LYSINE
     Indication: HERPES VIRUS INFECTION
     Dosage: UNK

REACTIONS (1)
  - Mycobacterium tuberculosis complex test positive [Unknown]
